FAERS Safety Report 4679535-2 (Version None)
Quarter: 2005Q1

REPORT INFORMATION
  Report Type: 
  Country: None (occurrence: None)
  Receive Date: 20041027
  Receipt Date: 20041027
  Transmission Date: 20050727
  Serious: Yes (Other)
  Sender: FDA-Public Use
  Company Number: CTU 243011

PATIENT
  Age: 75 Year
  Sex: Female
  Weight: 68.0396 kg

DRUGS (1)
  1. VERELAN DM [Suspect]
     Dosage: 240 DAILY PO
     Route: 048

REACTIONS (1)
  - PALPITATIONS [None]
